FAERS Safety Report 4457634-8 (Version None)
Quarter: 2004Q3

REPORT INFORMATION
  Report Type: 
  Country: None (occurrence: None)
  Receive Date: 20040922
  Receipt Date: 20040902
  Transmission Date: 20050211
  Serious: Yes (Other)
  Sender: FDA-Public Use
  Company Number: USA040360514

PATIENT
  Age: 70 Year
  Sex: Female
  Weight: 86 kg

DRUGS (13)
  1. HUMULIN R [Suspect]
     Dosage: 30 U DAY
  2. HUMULIN N [Suspect]
     Dosage: 78 U DAY
     Dates: start: 20001101
  3. ATENOLOL [Concomitant]
  4. LASIX [Concomitant]
  5. POTASSIUM [Concomitant]
  6. LOTENSIN [Concomitant]
  7. PLAVIX [Concomitant]
  8. DIGOXIN [Concomitant]
  9. SYNTHROID [Concomitant]
  10. FOLIC ACID [Concomitant]
  11. NEURONTIN (CITICOLINE SODIUM) [Concomitant]
  12. LIPITOR [Concomitant]
  13. HUMULIN 70/30 [Concomitant]

REACTIONS (2)
  - EYE HAEMORRHAGE [None]
  - VISUAL DISTURBANCE [None]
